FAERS Safety Report 15153818 (Version 1)
Quarter: 2018Q3

REPORT INFORMATION
  Report Type: Spontaneous
  Country: US (occurrence: US)
  Receive Date: 20180717
  Receipt Date: 20180717
  Transmission Date: 20181010
  Serious: No
  Sender: FDA-Public Use
  Company Number: US-SA-2018SA190858

PATIENT

DRUGS (1)
  1. ZOLPIDEM TARTRATE EXTENDED RELEASE ? WINTHROP [Suspect]
     Active Substance: ZOLPIDEM TARTRATE
     Dosage: 12.5 MG, UNK
     Route: 065

REACTIONS (1)
  - Unevaluable event [Unknown]
